FAERS Safety Report 6609502-0 (Version None)
Quarter: 2010Q1

REPORT INFORMATION
  Report Type: 
  Country: None (occurrence: None)
  Receive Date: 20100302
  Receipt Date: 20100224
  Transmission Date: 20100710
  Serious: Yes (Hospitalization)
  Sender: FDA-Public Use
  Company Number: US-NOVOPROD-304810

PATIENT
  Sex: Female
  Weight: 83.9 kg

DRUGS (5)
  1. LEVEMIR [Suspect]
     Indication: TYPE 2 DIABETES MELLITUS
     Dosage: 12 IU, BID
     Route: 058
     Dates: start: 20091201
  2. HUMALOG [Concomitant]
     Dosage: SLIDING SCALE
     Route: 058
     Dates: start: 20091201
  3. ALBUTEROL [Concomitant]
  4. SPIRIVA [Concomitant]
  5. ADVAIR DISKUS 100/50 [Concomitant]

REACTIONS (1)
  - ASTHMA [None]
